APPROVED DRUG PRODUCT: VENLAFAXINE HYDROCHLORIDE
Active Ingredient: VENLAFAXINE HYDROCHLORIDE
Strength: EQ 37.5MG BASE
Dosage Form/Route: TABLET, EXTENDED RELEASE;ORAL
Application: A216044 | Product #001 | TE Code: AB
Applicant: UNIQUE PHARMACEUTICAL LABORATORIES A DIV OF JB CHEMICALS AND PHARMACEUTICALS LTD
Approved: Nov 28, 2022 | RLD: No | RS: No | Type: RX